FAERS Safety Report 6414547-X (Version None)
Quarter: 2009Q4

REPORT INFORMATION
  Report Type: 
  Country: None (occurrence: None)
  Receive Date: 20091021
  Receipt Date: 20091006
  Transmission Date: 20100525
  Serious: Yes (Hospitalization)
  Sender: FDA-Public Use
  Company Number: 2009002187

PATIENT
  Age: 66 Year
  Sex: Male
  Weight: 78 kg

DRUGS (7)
  1. ERLOTINIB HYDROCHLORIDE [Suspect]
     Indication: PANCREATIC CARCINOMA
     Dosage: (QD) , ORAL
     Route: 048
     Dates: start: 20090610, end: 20090715
  2. PALLADONE [Concomitant]
  3. NAKLOFEN DUO (DICLOFENAC) [Concomitant]
  4. AMOKSIKLAV (AMOXI-CLAVULANICO) [Concomitant]
  5. CIPRINOL (CIPROFLOXACIN) [Concomitant]
  6. EFLORAN (METRONIDAZOLE) [Concomitant]
  7. NAKLOFEN (DICLOFENAC SODIUM) [Concomitant]

REACTIONS (3)
  - ANAEMIA [None]
  - HAEMOGLOBIN DECREASED [None]
  - SEPSIS [None]
